FAERS Safety Report 21075223 (Version 1)
Quarter: 2022Q3

REPORT INFORMATION
  Report Type: Spontaneous
  Country: US (occurrence: None)
  Receive Date: 20220712
  Receipt Date: 20220712
  Transmission Date: 20221026
  Serious: Yes (Life-Threatening, Hospitalization, Disabling, Other)
  Sender: FDA-Public Use
  Company Number: None

PATIENT
  Age: 27 Year
  Sex: Female
  Weight: 56.25 kg

DRUGS (2)
  1. HERBALS\MITRAGYNINE [Suspect]
     Active Substance: HERBALS\MITRAGYNINE
     Indication: Asthenia
     Dates: start: 20190820, end: 20210620
  2. HERBALS\MITRAGYNINE [Suspect]
     Active Substance: HERBALS\MITRAGYNINE
     Indication: Insomnia

REACTIONS (7)
  - Hepatic failure [None]
  - Alopecia [None]
  - Decreased appetite [None]
  - Libido decreased [None]
  - Constipation [None]
  - Withdrawal syndrome [None]
  - Urine analysis abnormal [None]

NARRATIVE: CASE EVENT DATE: 20210625
